FAERS Safety Report 10311948 (Version 3)
Quarter: 2014Q4

REPORT INFORMATION
  Report Type: Spontaneous
  Country: None (occurrence: None)
  Receive Date: 20140715
  Receipt Date: 20141203
  Transmission Date: 20150528
  Serious: Yes (Hospitalization)
  Sender: FDA-Public Use
  Company Number: 1713747-2014-99997

PATIENT
  Age: 71 Year
  Sex: Male
  Weight: 104.2 kg

DRUGS (20)
  1. NEWTON CYCLER [Concomitant]
  2. FRESENIUS PD SOLUTION [Concomitant]
  3. NOVOLOG [Concomitant]
     Active Substance: INSULIN ASPART
  4. ASA [Concomitant]
     Active Substance: ASPIRIN
  5. TRICOR [Concomitant]
     Active Substance: FENOFIBRATE
  6. NEURONTIN [Concomitant]
     Active Substance: GABAPENTIN
  7. ZOCOR [Concomitant]
     Active Substance: SIMVASTATIN
  8. NEWTON CYCLER CASSETTE [Concomitant]
  9. FUROSEMIDE. [Concomitant]
     Active Substance: FUROSEMIDE
  10. CALCITROL [Concomitant]
     Active Substance: CALCITRIOL
  11. FISH OIL [Concomitant]
     Active Substance: FISH OIL
  12. MAGOX [Concomitant]
  13. PROTONIX [Concomitant]
     Active Substance: PANTOPRAZOLE SODIUM
  14. NEPHROCAPS [Concomitant]
     Active Substance: ASCORBIC ACID\BIOTIN\CYANOCOBALAMIN\FOLIC ACID\NIACIN\PANTOTHENIC ACID\PYRIDOXINE\RIBOFLAVIN\THIAMINE
  15. ATENOLOL. [Concomitant]
     Active Substance: ATENOLOL
  16. DELFLEX [Suspect]
     Active Substance: CALCIUM CHLORIDE\DEXTROSE MONOHYDRATE\MAGNESIUM CHLORIDE\SODIUM CHLORIDE\SODIUM LACTATE
     Indication: CHRONIC KIDNEY DISEASE
     Dosage: IP
     Route: 033
     Dates: start: 20140609
  17. GLIPIZIDE. [Concomitant]
     Active Substance: GLIPIZIDE
  18. LEVEMIR [Concomitant]
     Active Substance: INSULIN DETEMIR
  19. REGLAN [Concomitant]
     Active Substance: METOCLOPRAMIDE HYDROCHLORIDE
  20. CLONAZEPAM. [Concomitant]
     Active Substance: CLONAZEPAM

REACTIONS (7)
  - Mental status changes [None]
  - Vomiting [None]
  - Staphylococcal infection [None]
  - Confusional state [None]
  - Diarrhoea [None]
  - Peritonitis [None]
  - Ileus [None]

NARRATIVE: CASE EVENT DATE: 20140609
